FAERS Safety Report 16377227 (Version 2)
Quarter: 2019Q2

REPORT INFORMATION
  Report Type: Spontaneous
  Country: LV (occurrence: LV)
  Receive Date: 20190531
  Receipt Date: 20190618
  Transmission Date: 20190711
  Serious: Yes (Death)
  Sender: FDA-Public Use
  Company Number: PHHY2019LV126154

PATIENT
  Age: 72 Year
  Sex: Male

DRUGS (12)
  1. ENTRESTO [Suspect]
     Active Substance: SACUBITRIL\VALSARTAN
     Indication: CARDIAC FAILURE
     Dosage: 50 MG, BID (24/26)
     Route: 048
     Dates: start: 20181118, end: 20181125
  2. TRIPLIXAM [Concomitant]
     Active Substance: AMLODIPINE BESYLATE\INDAPAMIDE\PERINDOPRIL ARGININE
     Indication: PRODUCT USED FOR UNKNOWN INDICATION
     Dosage: 1 DF, QD
     Route: 065
  3. SORTIS [Concomitant]
     Active Substance: ATORVASTATIN
     Indication: PRODUCT USED FOR UNKNOWN INDICATION
     Dosage: 80 OT, QD
     Route: 065
  4. FUROSEMIDE. [Concomitant]
     Active Substance: FUROSEMIDE
     Indication: PRODUCT USED FOR UNKNOWN INDICATION
     Dosage: 40 OT, QW3
     Route: 065
  5. ENTRESTO [Suspect]
     Active Substance: SACUBITRIL\VALSARTAN
     Dosage: 100 MG, BID (49/51)
     Route: 048
     Dates: start: 20181126, end: 20181210
  6. NOLPAZA [Concomitant]
     Active Substance: PANTOPRAZOLE SODIUM
     Indication: PRODUCT USED FOR UNKNOWN INDICATION
     Dosage: 20 OT, QD
     Route: 065
  7. DOXAZOSIN [Concomitant]
     Active Substance: DOXAZOSIN\DOXAZOSIN MESYLATE
     Indication: PRODUCT USED FOR UNKNOWN INDICATION
     Dosage: 0.4 OT, QD
     Route: 065
  8. CONCOR [Concomitant]
     Active Substance: BISOPROLOL FUMARATE
     Indication: PRODUCT USED FOR UNKNOWN INDICATION
     Dosage: 5 OT, QD
     Route: 065
  9. ENTRESTO [Suspect]
     Active Substance: SACUBITRIL\VALSARTAN
     Dosage: 100 MG, BID (49/51)
     Route: 048
  10. ENTRESTO [Suspect]
     Active Substance: SACUBITRIL\VALSARTAN
     Dosage: 200 MG, BID (97/103)
     Route: 048
     Dates: start: 20181211
  11. ALLOPURINOL. [Concomitant]
     Active Substance: ALLOPURINOL
     Indication: PRODUCT USED FOR UNKNOWN INDICATION
     Dosage: 100 OT, QD
     Route: 065
  12. WARFARINE [Concomitant]
     Active Substance: WARFARIN
     Indication: PRODUCT USED FOR UNKNOWN INDICATION
     Dosage: 10 OT, QD
     Route: 065

REACTIONS (3)
  - Hypotension [Unknown]
  - Death [Fatal]
  - Fall [Unknown]

NARRATIVE: CASE EVENT DATE: 20190214
